FAERS Safety Report 7164521-3 (Version None)
Quarter: 2010Q4

REPORT INFORMATION
  Report Type: 
  Country: None (occurrence: None)
  Receive Date: 20101123
  Receipt Date: 20100730
  Transmission Date: 20110411
  Serious: No
  Sender: FDA-Public Use
  Company Number: 016496

PATIENT

DRUGS (1)
  1. CIMZIA [Suspect]
     Dosage: (EACH MONTH SUBCUTANEOUS)
     Route: 058
     Dates: start: 20100511

REACTIONS (1)
  - INJECTION SITE DISCOLOURATION [None]
